FAERS Safety Report 6969590-9 (Version None)
Quarter: 2010Q3

REPORT INFORMATION
  Report Type: 
  Country: None (occurrence: None)
  Receive Date: 20100903
  Receipt Date: 20100824
  Transmission Date: 20110219
  Serious: Yes (Hospitalization)
  Sender: FDA-Public Use
  Company Number: UTC-001372

PATIENT
  Age: 54 Year
  Sex: Male
  Weight: 105.7 kg

DRUGS (18)
  1. TYVASO [Suspect]
     Indication: PULMONARY ARTERIAL HYPERTENSION
     Dosage: (162 MCG, 1 D), INHALATION
     Route: 055
     Dates: start: 20100223
  2. ALDACTONE [Concomitant]
  3. BUMEX [Concomitant]
  4. CARAFATE [Concomitant]
  5. CHRONULAC (LACTULOSE) [Concomitant]
  6. DUONEB [Concomitant]
  7. DURAGESIC-100 [Concomitant]
  8. FLOMAX (MORNIFLUMATE) [Concomitant]
  9. LOPERAMIDE (LOPERAMIDE) [Concomitant]
  10. MUCINEX [Concomitant]
  11. PERCOCET [Concomitant]
  12. PHENERGAN (PROMETHAZINE) [Concomitant]
  13. POTASSIUM CHLORIDE [Concomitant]
  14. PROTONIX [Concomitant]
  15. REGLAN [Concomitant]
  16. RESTORIL [Concomitant]
  17. ZAROXOLYN [Concomitant]
  18. ZOFRAN [Concomitant]

REACTIONS (16)
  - CHEST PAIN [None]
  - CONDITION AGGRAVATED [None]
  - COUGH [None]
  - DECREASED APPETITE [None]
  - DIARRHOEA [None]
  - DIZZINESS [None]
  - HAEMOPTYSIS [None]
  - HEADACHE [None]
  - MUSCULOSKELETAL PAIN [None]
  - NAUSEA [None]
  - PAIN IN JAW [None]
  - PHARYNGITIS [None]
  - PULMONARY ARTERIAL HYPERTENSION [None]
  - PULMONARY FUNCTION TEST ABNORMAL [None]
  - TACHYCARDIA [None]
  - VOMITING [None]
